FAERS Safety Report 6234396-5 (Version None)
Quarter: 2009Q2

REPORT INFORMATION
  Report Type: 
  Country: None (occurrence: None)
  Receive Date: 20090618
  Receipt Date: 20090610
  Transmission Date: 20091009
  Serious: Yes (Hospitalization, Congenital Anomaly, Other)
  Sender: FDA-Public Use
  Company Number: CL-ROCHE-632521

PATIENT
  Age: 7 Month
  Sex: Female

DRUGS (1)
  1. ISOTRETINOIN [Suspect]
     Indication: ACNE
     Dosage: ADMINISTERED FOR THREE MONTHS PRIOR TO PREGNANCY.
     Route: 064

REACTIONS (10)
  - APRAXIA [None]
  - BENIGN CONGENITAL HYPOTONIA [None]
  - CEREBRAL ATROPHY [None]
  - CONGENITAL CEREBELLAR AGENESIS [None]
  - CONSTIPATION [None]
  - DIARRHOEA [None]
  - HYPERVENTILATION [None]
  - PSYCHOMOTOR SKILLS IMPAIRED [None]
  - PUPILS UNEQUAL [None]
  - SKULL MALFORMATION [None]
